FAERS Safety Report 6810637-8 (Version None)
Quarter: 2010Q2

REPORT INFORMATION
  Report Type: 
  Country: None (occurrence: None)
  Receive Date: 20100629
  Receipt Date: 20100629
  Transmission Date: 20101027
  Serious: Yes (Other)
  Sender: FDA-Public Use
  Company Number: None

PATIENT
  Sex: Male
  Weight: 68.2 kg

DRUGS (1)
  1. CIPROFLOXACIN 500MG BID PO [Suspect]
     Indication: URINARY TRACT INFECTION
     Dosage: 500 MG BID PO 2 DOSES
     Route: 048
     Dates: start: 20100617

REACTIONS (3)
  - HEADACHE [None]
  - PAIN [None]
  - PAIN IN EXTREMITY [None]
